FAERS Safety Report 7606741-7 (Version None)
Quarter: 2011Q3

REPORT INFORMATION
  Report Type: 
  Country: None (occurrence: None)
  Receive Date: 20110713
  Receipt Date: 20110711
  Transmission Date: 20111222
  Serious: Yes (Hospitalization, Other)
  Sender: FDA-Public Use
  Company Number: US-MERCK-1104USA01379

PATIENT
  Age: 65 Year
  Sex: Female

DRUGS (8)
  1. FORTEO [Suspect]
     Indication: OSTEOPOROSIS
     Route: 065
     Dates: start: 20101001
  2. FOSAMAX [Suspect]
     Route: 048
     Dates: start: 19990816, end: 20090921
  3. CALCIUM (UNSPECIFIED) [Concomitant]
     Route: 065
  4. FOSAMAX [Suspect]
     Indication: OSTEOPOROSIS PROPHYLAXIS
     Route: 048
     Dates: start: 20021126, end: 20090211
  5. FOSAMAX [Suspect]
     Route: 048
     Dates: start: 19990816, end: 20090921
  6. FOSAMAX [Suspect]
     Indication: OSTEOPENIA
     Route: 048
     Dates: start: 20021126, end: 20090211
  7. PREMARIN [Concomitant]
     Route: 065
  8. VITAMINS (UNSPECIFIED) [Concomitant]
     Route: 065

REACTIONS (6)
  - FALL [None]
  - FEMUR FRACTURE [None]
  - SPINAL DISORDER [None]
  - BREAST CANCER [None]
  - LOW TURNOVER OSTEOPATHY [None]
  - RADIUS FRACTURE [None]
